FAERS Safety Report 11072982 (Version 3)
Quarter: 2015Q4

REPORT INFORMATION
  Report Type: Report from Study
  Country: NO (occurrence: NO)
  Receive Date: 20150428
  Receipt Date: 20151113
  Transmission Date: 20160304
  Serious: Yes (Other)
  Sender: FDA-Public Use
  Company Number: NO-PFIZER INC-2015139895

PATIENT
  Age: 33 Year
  Sex: Female
  Weight: 74 kg

DRUGS (8)
  1. MEKINIST [Suspect]
     Active Substance: TRAMETINIB DIMETHYL SULFOXIDE
     Dosage: 2 MG, 1X/DAY
     Route: 065
     Dates: start: 20150110
  2. VANCOMYCIN HCL [Suspect]
     Active Substance: VANCOMYCIN HYDROCHLORIDE
     Indication: CLOSTRIDIUM DIFFICILE INFECTION
     Dosage: UNK
     Route: 065
  3. DICLOXACILLIN [Suspect]
     Active Substance: DICLOXACILLIN
     Indication: CLOSTRIDIUM DIFFICILE INFECTION
     Dosage: UNK
     Route: 065
  4. TAFINLAR [Suspect]
     Active Substance: DABRAFENIB MESYLATE
     Dosage: 75 MG, 2X/DAY
     Route: 065
     Dates: start: 20150416
  5. TAFINLAR [Suspect]
     Active Substance: DABRAFENIB MESYLATE
     Indication: METASTATIC MALIGNANT MELANOMA
     Dosage: 150 MG, 2X/DAY
     Dates: start: 20141218, end: 20150413
  6. CLINDAMYCIN PHOSPHATE. [Suspect]
     Active Substance: CLINDAMYCIN PHOSPHATE
     Indication: CLOSTRIDIUM DIFFICILE INFECTION
     Dosage: UNK
     Dates: start: 201412
  7. MEKINIST [Suspect]
     Active Substance: TRAMETINIB DIMETHYL SULFOXIDE
     Indication: METASTATIC MALIGNANT MELANOMA
     Dosage: 150 MG, 2X/DAY
     Dates: start: 20141218, end: 20150409
  8. METRONIDAN//METRONIDAZOLE [Suspect]
     Active Substance: METRONIDAZOLE
     Indication: CLOSTRIDIUM DIFFICILE INFECTION
     Dosage: UNK
     Route: 065
     Dates: start: 20150320, end: 20150330

REACTIONS (9)
  - Abdominal pain upper [Not Recovered/Not Resolved]
  - Seizure [Unknown]
  - Dehydration [Unknown]
  - Hyperaesthesia [Unknown]
  - Diarrhoea [Recovered/Resolved]
  - Erythema [Unknown]
  - Clostridium difficile infection [Unknown]
  - Rash [Unknown]
  - Pyrexia [Unknown]

NARRATIVE: CASE EVENT DATE: 20150409
